FAERS Safety Report 18705487 (Version 1)
Quarter: 2021Q1

REPORT INFORMATION
  Report Type: Spontaneous
  Country: US (occurrence: US)
  Receive Date: 20210106
  Receipt Date: 20210106
  Transmission Date: 20210419
  Serious: Yes (Hospitalization, Other)
  Sender: FDA-Public Use
  Company Number: US-AUROBINDO-AUR-APL-2021-000171

PATIENT
  Age: 39 Year
  Sex: Male

DRUGS (1)
  1. ACETAMINOPHEN. [Suspect]
     Active Substance: ACETAMINOPHEN
     Indication: PRODUCT USED FOR UNKNOWN INDICATION
     Dosage: 1 GRAM, EVERY FOUR HOUR (FOR SEVERAL DAYS)
     Route: 048

REACTIONS (7)
  - Fluid overload [Unknown]
  - Methaemoglobinaemia [Unknown]
  - Acute kidney injury [Unknown]
  - Acute hepatic failure [Unknown]
  - Overdose [Unknown]
  - Metabolic acidosis [Unknown]
  - Hyperkalaemia [Unknown]
